FAERS Safety Report 13752287 (Version 1)
Quarter: 2017Q3

REPORT INFORMATION
  Report Type: Spontaneous
  Country: US (occurrence: US)
  Receive Date: 20170713
  Receipt Date: 20170713
  Transmission Date: 20171127
  Serious: No
  Sender: FDA-Public Use
  Company Number: US-JAZZ-2017-US-006196

PATIENT
  Sex: Female

DRUGS (34)
  1. MOBIC [Concomitant]
     Active Substance: MELOXICAM
  2. PLEXION                            /00677901/ [Concomitant]
  3. TETRACYCLINE [Concomitant]
     Active Substance: TETRACYCLINE
  4. XYREM [Suspect]
     Active Substance: SODIUM OXYBATE
     Dosage: 3 G, BID,SECOND DOSE
     Route: 048
     Dates: start: 201006, end: 201011
  5. ALENDRONATE SODIUM. [Concomitant]
     Active Substance: ALENDRONATE SODIUM
  6. CALCIUM + VITAMIN D                /01483701/ [Concomitant]
     Active Substance: CALCIUM\VITAMIN D
  7. TYLENOL WITH CODEINE [Concomitant]
     Active Substance: ACETAMINOPHEN\CODEINE PHOSPHATE
  8. CEROVITE [Concomitant]
     Active Substance: FOLIC ACID\IRON
  9. FLONASE                            /00908302/ [Concomitant]
     Active Substance: MOMETASONE FUROATE
  10. LYRICA [Concomitant]
     Active Substance: PREGABALIN
  11. PLAQUENIL                          /00072602/ [Concomitant]
     Active Substance: HYDROXYCHLOROQUINE DIPHOSPHATE
  12. METROGEL [Concomitant]
     Active Substance: METRONIDAZOLE
  13. NEXIUM [Concomitant]
     Active Substance: ESOMEPRAZOLE MAGNESIUM
  14. XYREM [Suspect]
     Active Substance: SODIUM OXYBATE
     Dosage: 5 G, QD, FIRST DOSE
     Route: 048
     Dates: start: 201006, end: 201011
  15. KETOROLAC [Concomitant]
     Active Substance: KETOROLAC\KETOROLAC TROMETHAMINE
  16. NAMENDA [Concomitant]
     Active Substance: MEMANTINE HYDROCHLORIDE
  17. SOLODYN [Concomitant]
     Active Substance: MINOCYCLINE HYDROCHLORIDE
  18. RESTASIS [Concomitant]
     Active Substance: CYCLOSPORINE
  19. XYREM [Suspect]
     Active Substance: SODIUM OXYBATE
     Dosage: 4.5G, BID
     Route: 048
     Dates: start: 201011
  20. ASPIRIN 81 [Concomitant]
     Active Substance: ASPIRIN
  21. LASIX [Concomitant]
     Active Substance: FUROSEMIDE
  22. SUCRALFATE. [Concomitant]
     Active Substance: SUCRALFATE
  23. ALLEGRA [Concomitant]
     Active Substance: FEXOFENADINE HYDROCHLORIDE
  24. CLONAZEPAM. [Concomitant]
     Active Substance: CLONAZEPAM
  25. CYMBALTA [Concomitant]
     Active Substance: DULOXETINE HYDROCHLORIDE
  26. VITAMIN B COMPLEX [Concomitant]
     Active Substance: CYANOCOBALAMIN\DEXPANTHENOL\NIACINAMIDE\PYRIDOXINE HYDROCHLORIDE\RIBOFLAVIN 5^-PHOSPHATE SODIUM\THIAMINE HYDROCHLORIDE\VITAMIN B COMPLEX
  27. NUVIGIL [Concomitant]
     Active Substance: ARMODAFINIL
  28. XYREM [Suspect]
     Active Substance: SODIUM OXYBATE
     Indication: SOMNOLENCE
     Dosage: 4.5G, BID
     Route: 048
     Dates: start: 200912, end: 201006
  29. AUGMENTIN [Concomitant]
     Active Substance: AMOXICILLIN\CLAVULANATE POTASSIUM
  30. PROVIGIL [Concomitant]
     Active Substance: MODAFINIL
  31. VIIBRYD [Concomitant]
     Active Substance: VILAZODONE HYDROCHLORIDE
  32. VITAMIN D                          /00107901/ [Concomitant]
     Active Substance: ERGOCALCIFEROL
  33. ZANTAC [Concomitant]
     Active Substance: RANITIDINE HYDROCHLORIDE
  34. KLONOPIN [Concomitant]
     Active Substance: CLONAZEPAM

REACTIONS (1)
  - Fatigue [Unknown]
